FAERS Safety Report 7343352-5 (Version None)
Quarter: 2011Q1

REPORT INFORMATION
  Report Type: 
  Country: None (occurrence: None)
  Receive Date: 20110228
  Receipt Date: 20110216
  Transmission Date: 20110831
  Serious: Yes (Other)
  Sender: FDA-Public Use
  Company Number: 2011SP007777

PATIENT
  Age: 19 Year
  Sex: Female

DRUGS (2)
  1. TEMOZOLOMIDE [Suspect]
     Indication: ANAPLASTIC ASTROCYTOMA
     Dosage: 100 MG;QOD; 120 MG;QOD;
  2. RADIOTHERAPY [Concomitant]

REACTIONS (4)
  - THROMBOCYTOPENIA [None]
  - APHASIA [None]
  - LEUKOPENIA [None]
  - HEMIPARESIS [None]
